FAERS Safety Report 5997977-X (Version None)
Quarter: 2008Q4

REPORT INFORMATION
  Report Type: 
  Country: None (occurrence: None)
  Receive Date: 20081212
  Receipt Date: 20081126
  Transmission Date: 20090506
  Serious: No
  Sender: FDA-Public Use
  Company Number: US-ABBOTT-08P-163-0490276-00

PATIENT
  Sex: Female

DRUGS (6)
  1. HUMIRA [Suspect]
     Indication: RHEUMATOID ARTHRITIS
     Route: 058
     Dates: start: 20081110
  2. FENTANYL TRANSDERMAL SYSTEM [Concomitant]
     Indication: RHEUMATOID ARTHRITIS
     Route: 062
  3. DARVACET [Concomitant]
     Indication: RHEUMATOID ARTHRITIS
  4. DARVACET [Concomitant]
     Indication: PAIN
  5. HYDROCODONE BITARTRATE [Concomitant]
     Indication: RHEUMATOID ARTHRITIS
  6. KENOLOG INJECTIONS [Concomitant]
     Indication: OSTEOARTHRITIS

REACTIONS (1)
  - ARTHRALGIA [None]
